FAERS Safety Report 18097215 (Version 1)
Quarter: 2020Q3

REPORT INFORMATION
  Report Type: Spontaneous
  Country: US (occurrence: US)
  Receive Date: 20200731
  Receipt Date: 20200731
  Transmission Date: 20201103
  Serious: No
  Sender: FDA-Public Use
  Company Number: US-PFIZER INC-2019354541

PATIENT
  Age: 73 Year
  Sex: Female
  Weight: 70.76 kg

DRUGS (1)
  1. PREMARIN [Suspect]
     Active Substance: ESTROGENS, CONJUGATED
     Indication: SEXUALLY ACTIVE
     Dosage: UNK, 2X/WEEK (0.5 MG? 1 GM, 2 NIGHTS PER WEEK)
     Route: 067

REACTIONS (3)
  - Off label use [Unknown]
  - Product use in unapproved indication [Unknown]
  - Hot flush [Not Recovered/Not Resolved]
